FAERS Safety Report 9485004 (Version 1)
Quarter: 2013Q3

REPORT INFORMATION
  Report Type: Spontaneous
  Country: US (occurrence: US)
  Receive Date: 20130828
  Receipt Date: 20130828
  Transmission Date: 20140515
  Serious: No
  Sender: FDA-Public Use
  Company Number: US-ABBOTT-13P-163-1107302-00

PATIENT
  Sex: Male
  Weight: 90.8 kg

DRUGS (1)
  1. ANDROGEL [Suspect]
     Indication: BLOOD TESTOSTERONE DECREASED
     Dosage: FOUR PUMPS DAILY
     Route: 061
     Dates: start: 20130301, end: 20130501

REACTIONS (4)
  - Blood oestrogen increased [Not Recovered/Not Resolved]
  - Apathy [Unknown]
  - Drug ineffective [Not Recovered/Not Resolved]
  - Blood testosterone decreased [Not Recovered/Not Resolved]
